FAERS Safety Report 25508502 (Version 2)
Quarter: 2025Q3

REPORT INFORMATION
  Report Type: Spontaneous
  Country: US (occurrence: US)
  Receive Date: 20250703
  Receipt Date: 20250814
  Transmission Date: 20251021
  Serious: Yes (Hospitalization)
  Sender: SANOFI AVENTIS
  Company Number: US-SA-2025SA183571

PATIENT
  Age: 53 Year
  Sex: Female

DRUGS (7)
  1. DUPIXENT [Suspect]
     Active Substance: DUPILUMAB
     Indication: Asthma
     Route: 058
     Dates: start: 202505, end: 202505
  2. DUPIXENT [Suspect]
     Active Substance: DUPILUMAB
     Dosage: 300 MG, QOW
     Route: 058
     Dates: start: 20250608, end: 2025
  3. DUPIXENT [Suspect]
     Active Substance: DUPILUMAB
     Dosage: 300 MG, QOW
     Route: 058
     Dates: start: 20250722
  4. ADALIMUMAB [Suspect]
     Active Substance: ADALIMUMAB
     Dates: start: 202505
  5. PREDNISONE [Concomitant]
     Active Substance: PREDNISONE
     Dates: start: 20250624
  6. TESSALON [Concomitant]
     Active Substance: BENZONATATE
  7. DOXYCYCLINE [Concomitant]
     Active Substance: DOXYCYCLINE

REACTIONS (12)
  - Pleural effusion [Unknown]
  - Pain in extremity [Unknown]
  - Condition aggravated [Unknown]
  - Cough [Unknown]
  - Respiration abnormal [Unknown]
  - White blood cell count increased [Unknown]
  - Dyspnoea [Unknown]
  - Loss of personal independence in daily activities [Unknown]
  - Sleep disorder due to a general medical condition [Unknown]
  - Pyrexia [Unknown]
  - Sputum discoloured [Unknown]
  - Asthma [Unknown]

NARRATIVE: CASE EVENT DATE: 20250101
